FAERS Safety Report 22223682 (Version 1)
Quarter: 2023Q2

REPORT INFORMATION
  Report Type: Spontaneous
  Country: US (occurrence: None)
  Receive Date: 20230417
  Receipt Date: 20230417
  Transmission Date: 20230722
  Serious: No
  Sender: FDA-Public Use
  Company Number: None

PATIENT
  Age: 53 Year

DRUGS (21)
  1. CAPECITABINE [Suspect]
     Active Substance: CAPECITABINE
     Indication: Breast cancer female
     Dosage: OTHER FREQUENCY : 2W, 1W OFF;?
     Route: 048
     Dates: start: 20230406
  2. CAPECITABINE [Suspect]
     Active Substance: CAPECITABINE
     Dosage: FREQUENCY : TWICE A DAY;?
     Route: 048
     Dates: start: 20230406
  3. ASPIRIN 81 [Concomitant]
  4. AZITHROMYCIN [Concomitant]
  5. CALTRATE 600+D [Concomitant]
  6. DEXAMETHASONE [Concomitant]
     Active Substance: DEXAMETHASONE
  7. DRONABINOL [Concomitant]
  8. FENTANYL TRANSDERMAL SYSTEM [Concomitant]
     Active Substance: FENTANYL
  9. FERROUS SULFATE [Concomitant]
     Active Substance: FERROUS SULFATE
  10. FOLIC ACID [Concomitant]
     Active Substance: FOLIC ACID
  11. Keytruda Intravenous [Concomitant]
  12. LEVAQUIN [Concomitant]
     Active Substance: LEVOFLOXACIN
  13. ONDANSETRON [Concomitant]
     Active Substance: ONDANSETRON
  14. KLOR-CON [Concomitant]
     Active Substance: POTASSIUM CHLORIDE
  15. 4X Probiotic [Concomitant]
  16. TRAMADOL [Suspect]
     Active Substance: TRAMADOL
  17. TYLENOL EXTRA STRENGTH [Concomitant]
  18. VITAMIN D3 [Concomitant]
     Active Substance: CHOLECALCIFEROL
  19. Yervoy Intravenous [Concomitant]
  20. ZINECARD [Concomitant]
     Active Substance: DEXRAZOXANE HYDROCHLORIDE
  21. ZOFRAN [Concomitant]
     Active Substance: ONDANSETRON HYDROCHLORIDE

REACTIONS (2)
  - Drug ineffective [None]
  - Neoplasm progression [None]
